FAERS Safety Report 13984453 (Version 4)
Quarter: 2021Q1

REPORT INFORMATION
  Report Type: Spontaneous
  Country: TR (occurrence: TR)
  Receive Date: 20170918
  Receipt Date: 20210317
  Transmission Date: 20210419
  Serious: Yes (Other)
  Sender: FDA-Public Use
  Company Number: TR-PFIZER INC-2012SE57202

PATIENT
  Age: 14 Year
  Sex: Female

DRUGS (15)
  1. MEROPENEM. [Suspect]
     Active Substance: MEROPENEM
     Indication: PNEUMONIA
     Dosage: 1 G, 2X/DAY
     Route: 042
  2. VALPROATE SODIUM. [Interacting]
     Active Substance: VALPROATE SODIUM
     Dosage: 350 MG, 3X/DAY (350 MG, EVERY 8 HOURS) (DAY 9)
  3. LEVETIRACETAM. [Concomitant]
     Active Substance: LEVETIRACETAM
     Indication: LENNOX-GASTAUT SYNDROME
     Dosage: UNK (VALPROATE + LAMOTRIGINE + CLOBAZAM + LEVETIRACETAM)
     Route: 048
  4. VALPROATE SODIUM. [Interacting]
     Active Substance: VALPROATE SODIUM
     Dosage: 500 MG, 3X/DAY (500 MG, EVERY 8 HOURS) (DAY 3)
  5. VALPROATE SODIUM. [Interacting]
     Active Substance: VALPROATE SODIUM
     Dosage: 350 MG, 3X/DAY (350 MG, EVERY 8 HOURS) (DAY 17)
  6. CLOBAZAM. [Concomitant]
     Active Substance: CLOBAZAM
     Indication: LENNOX-GASTAUT SYNDROME
     Dosage: UNK (VALPROATE + LAMOTRIGINE + CLOBAZAM + LEVETIRACETAM)
     Route: 048
  7. MEROPENEM. [Interacting]
     Active Substance: MEROPENEM
     Indication: PLEURISY
  8. CEFTRIAXONE. [Concomitant]
     Active Substance: CEFTRIAXONE
     Indication: PNEUMONIA
     Dosage: UNK
  9. VANCOMYCINE [VANCOMYCIN] [Concomitant]
     Active Substance: VANCOMYCIN
     Indication: PNEUMONIA
     Dosage: UNK
  10. LAMOTRIGINE. [Concomitant]
     Active Substance: LAMOTRIGINE
     Indication: LENNOX-GASTAUT SYNDROME
     Dosage: UNK (VALPROATE + LAMOTRIGINE + CLOBAZAM + LEVETIRACETAM)
     Route: 048
  11. VALPROATE SODIUM. [Interacting]
     Active Substance: VALPROATE SODIUM
     Indication: EPILEPSY
     Dosage: UNK (VALPROATE + LAMOTRIGINE + CLOBAZAM + LEVETIRACETAM)
     Route: 048
  12. VALPROATE SODIUM. [Interacting]
     Active Substance: VALPROATE SODIUM
     Dosage: 500 MG, 3X/DAY (500 MG, EVERY 8 HOURS) (DAY 5) (RAISED)
  13. VALPROATE SODIUM. [Interacting]
     Active Substance: VALPROATE SODIUM
     Dosage: 350 MG, 3X/DAY (350 MG, EVERY 8 HOURS) (DAY 6)
  14. VALPROATE SODIUM. [Interacting]
     Active Substance: VALPROATE SODIUM
     Dosage: 350 MG, 3X/DAY (350 MG, EVERY 8 HOURS) (DAY 36)
  15. VALPROATE SODIUM. [Interacting]
     Active Substance: VALPROATE SODIUM
     Dosage: 350 MG, 3X/DAY (350 MG, EVERY 8 HOURS) (DAY 7)

REACTIONS (4)
  - Anticonvulsant drug level below therapeutic [Recovered/Resolved]
  - Seizure [Recovered/Resolved]
  - Drug interaction [Recovered/Resolved]
  - Somnolence [Recovered/Resolved]
